FAERS Safety Report 9093007 (Version 2)
Quarter: 2013Q1

REPORT INFORMATION
  Report Type: Spontaneous
  Country: JP (occurrence: JP)
  Receive Date: 20130201
  Receipt Date: 20130207
  Transmission Date: 20140127
  Serious: Yes (Hospitalization, Other)
  Sender: FDA-Public Use
  Company Number: JP-PFIZER INC-2012269784

PATIENT
  Age: 66 Year
  Sex: Female
  Weight: 50 kg

DRUGS (18)
  1. LYRICA [Suspect]
     Indication: ANALGESIC THERAPY
     Dosage: 75 MG, 2X/DAY
     Route: 048
     Dates: start: 20121013, end: 20121025
  2. CELECOX [Suspect]
     Indication: ANALGESIC THERAPY
     Dosage: 200 MG, 2X/DAY
     Route: 048
     Dates: start: 20121013, end: 20121025
  3. GAMOFA D [Suspect]
     Indication: GASTRITIS
     Dosage: 20 MG, 2X/DAY
     Route: 048
     Dates: start: 20121013, end: 20121025
  4. MYONAL [Suspect]
     Indication: MUSCLE TIGHTNESS
     Dosage: 50 MG, 2X/DAY
     Route: 048
     Dates: start: 20121013, end: 20121025
  5. GLACTIV [Suspect]
     Indication: HYPERGLYCAEMIA
     Dosage: 50 MG, 2X/DAY
     Route: 048
     Dates: start: 20121017, end: 20121025
  6. MAGMITT [Concomitant]
     Indication: CONSTIPATION
     Dosage: 250 MG, 3X/DAY
     Route: 048
     Dates: start: 20121013, end: 20121025
  7. AMLIDIPINE OD [Concomitant]
     Indication: HYPERTENSION
     Dosage: 5 MG, 1X/DAY
     Route: 048
     Dates: start: 20121017, end: 20121025
  8. AMARYL [Concomitant]
     Indication: HYPERGLYCAEMIA
     Dosage: 1 MG, 1X/DAY
     Route: 048
     Dates: start: 20121015, end: 20121017
  9. AMARYL [Concomitant]
     Dosage: 1 MG, 2X/DAY
     Route: 048
     Dates: start: 20121017, end: 20121025
  10. ZOPICOOL [Concomitant]
     Indication: INSOMNIA
     Dosage: 7.5 MG, 1X/DAY
     Route: 048
     Dates: start: 20121013, end: 20121025
  11. MUCOSTA [Concomitant]
     Indication: GASTROINTESTINAL DISORDER
     Dosage: 100 MG, 2X/DAY
     Dates: start: 20121013, end: 20121025
  12. HERBAL EXTRACTS NOS [Concomitant]
     Indication: OEDEMA
     Dosage: UNK
     Route: 048
     Dates: start: 20121013, end: 20121025
  13. MECOBALAMIN [Concomitant]
     Indication: NERVOUS SYSTEM DISORDER
     Dosage: 500 UG, 3X/DAY
     Route: 048
     Dates: start: 20121013, end: 20121025
  14. BIOFERMIN [Concomitant]
     Indication: GASTROINTESTINAL DISORDER
     Dosage: UNK
     Route: 048
     Dates: start: 20121013, end: 20121025
  15. HUMALOG [Concomitant]
     Indication: HYPERGLYCAEMIA
     Dosage: UNK
     Route: 058
     Dates: start: 20121025
  16. METHYLPREDNISOLONE [Concomitant]
     Indication: CERVICAL MYELOPATHY
     Dosage: 1500 MG, UNK
     Route: 042
     Dates: start: 20121013
  17. METHYLPREDNISOLONE [Concomitant]
     Dosage: 6200 MG, UNK
     Route: 042
     Dates: start: 20121013, end: 20121014
  18. VEEN-F [Concomitant]
     Indication: ELECTROLYTE IMBALANCE
     Dosage: 1000 ML, UNK
     Route: 041

REACTIONS (2)
  - Rash generalised [Recovering/Resolving]
  - Stevens-Johnson syndrome [Recovering/Resolving]
